FAERS Safety Report 9395675 (Version 2)
Quarter: 2013Q3

REPORT INFORMATION
  Report Type: Spontaneous
  Country: CL (occurrence: CL)
  Receive Date: 20130711
  Receipt Date: 20130805
  Transmission Date: 20140515
  Serious: Yes (Other)
  Sender: FDA-Public Use
  Company Number: CL-JNJFOC-20130703205

PATIENT
  Sex: Female
  Weight: 60 kg

DRUGS (3)
  1. REMICADE [Suspect]
     Indication: ANKYLOSING SPONDYLITIS
     Route: 042
  2. REMICADE [Suspect]
     Indication: ANKYLOSING SPONDYLITIS
     Route: 042
     Dates: start: 2009
  3. METHOTREXATE [Concomitant]
     Route: 065

REACTIONS (6)
  - Onychomycosis [Not Recovered/Not Resolved]
  - Liver disorder [Recovered/Resolved]
  - Renal disorder [Recovered/Resolved]
  - Immune system disorder [Not Recovered/Not Resolved]
  - Alopecia [Not Recovered/Not Resolved]
  - Oral mucosal blistering [Not Recovered/Not Resolved]
